FAERS Safety Report 19802645 (Version 1)
Quarter: 2021Q3

REPORT INFORMATION
  Report Type: Spontaneous
  Country: CA (occurrence: CA)
  Receive Date: 20210908
  Receipt Date: 20210908
  Transmission Date: 20211014
  Serious: Yes (Death)
  Sender: FDA-Public Use
  Company Number: CA-TEVA-2021-CA-1949647

PATIENT
  Age: 60 Year
  Sex: Male

DRUGS (4)
  1. OLANZAPINE. [Interacting]
     Active Substance: OLANZAPINE
     Route: 065
  2. SERTRALINE [Interacting]
     Active Substance: SERTRALINE HYDROCHLORIDE
     Route: 065
  3. NALTREXONE [Suspect]
     Active Substance: NALTREXONE
     Route: 065
  4. RISPERIDONE. [Interacting]
     Active Substance: RISPERIDONE
     Route: 065

REACTIONS (6)
  - Somnolence [Fatal]
  - Confusional state [Fatal]
  - Heat stroke [Fatal]
  - Drug interaction [Fatal]
  - Temperature regulation disorder [Fatal]
  - Speech disorder [Fatal]
